FAERS Safety Report 8484869-X (Version None)
Quarter: 2012Q2

REPORT INFORMATION
  Report Type: 
  Country: None (occurrence: None)
  Receive Date: 20120625
  Receipt Date: 20120515
  Transmission Date: 20120825
  Serious: Yes (Hospitalization)
  Sender: FDA-Public Use
  Company Number: DKLU1080341

PATIENT
  Age: 19 Year
  Sex: Male

DRUGS (14)
  1. TOPIRAMATE [Concomitant]
  2. CLONAZEPAM [Concomitant]
  3. GABATRIL (TIAGABINE HYDROCHLORIDE) [Concomitant]
  4. LAMICTAL [Concomitant]
  5. DIAZEPAM [Concomitant]
  6. VIMPAT [Concomitant]
  7. RUFINIMIDE [Concomitant]
  8. FELBATOL [Concomitant]
  9. SABRIL [Suspect]
     Indication: COMPLEX PARTIAL SEIZURES
     Dosage: 1000 MG MILLIGRAM(S), AM, ORAL; 1250 MG MILLIGRAM(S), PM, ORAL
     Dates: start: 20111020
  10. SABRIL [Suspect]
     Indication: COMPLEX PARTIAL SEIZURES
     Dosage: 1000 MG MILLIGRAM(S), AM, ORAL; 1250 MG MILLIGRAM(S), PM, ORAL
     Dates: start: 20111020
  11. KEPPRA [Concomitant]
  12. ZONEGRAN [Concomitant]
  13. DEPAKOTE [Concomitant]
  14. DILANTIN [Concomitant]

REACTIONS (1)
  - PNEUMONIA [None]
